FAERS Safety Report 5406160-8 (Version None)
Quarter: 2007Q3

REPORT INFORMATION
  Report Type: 
  Country: None (occurrence: None)
  Receive Date: 20070801
  Receipt Date: 20070713
  Transmission Date: 20080115
  Serious: Yes (Life-Threatening, Hospitalization)
  Sender: FDA-Public Use
  Company Number: ENTC2007-0196

PATIENT
  Age: 95 Year
  Sex: Female

DRUGS (2)
  1. STALEVO 100 [Suspect]
     Indication: PARKINSON'S DISEASE
     Dosage: 3 X50/12,5/200 MG, ORAL
     Route: 048
     Dates: start: 20070301, end: 20070606
  2. STALEVO 100 [Suspect]
     Indication: PARKINSON'S DISEASE
     Dosage: 3 X50/12,5/200 MG, ORAL
     Route: 048
     Dates: end: 20070616

REACTIONS (8)
  - APALLIC SYNDROME [None]
  - APHASIA [None]
  - COLD SWEAT [None]
  - COMA [None]
  - HYPERGLYCAEMIA [None]
  - HYPOGLYCAEMIA [None]
  - HYPOTONIA [None]
  - PARALYSIS [None]
